FAERS Safety Report 4554445-X (Version None)
Quarter: 2005Q1

REPORT INFORMATION
  Report Type: 
  Country: None (occurrence: None)
  Receive Date: 20050118
  Receipt Date: 20041224
  Transmission Date: 20050727
  Serious: Yes (Hospitalization)
  Sender: FDA-Public Use
  Company Number: NLWYE306524DEC04

PATIENT
  Sex: Male
  Weight: 82.5 kg

DRUGS (2)
  1. ENBREL [Suspect]
     Indication: ANKYLOSING SPONDYLITIS
     Dosage: UNKNOWN
     Route: 058
     Dates: start: 20041117
  2. ARCOXIA (MERCK SHARP + DOHME) [Concomitant]
     Dates: start: 20041001

REACTIONS (1)
  - THROMBOSIS [None]
